FAERS Safety Report 19462139 (Version 2)
Quarter: 2021Q3

REPORT INFORMATION
  Report Type: Report from Study
  Country: KR (occurrence: KR)
  Receive Date: 20210625
  Receipt Date: 20210820
  Transmission Date: 20211014
  Serious: Yes (Hospitalization)
  Sender: FDA-Public Use
  Company Number: KR-REGENERON PHARMACEUTICALS, INC.-2021-60969

PATIENT

DRUGS (7)
  1. PEXA?VEC [Suspect]
     Active Substance: PEXASTIMOGENE DEVACIREPVEC
     Indication: RENAL CELL CARCINOMA
     Dosage: UNKNOWN
     Route: 042
  2. A CET [Concomitant]
     Indication: PRODUCT USED FOR UNKNOWN INDICATION
     Dosage: UNK
     Route: 065
     Dates: start: 20210329
  3. CEMIPLIMAB [Suspect]
     Active Substance: CEMIPLIMAB
     Indication: RENAL CELL CARCINOMA
     Dosage: 350 MG, SINGLE
     Route: 042
     Dates: start: 20210308, end: 20210308
  4. CLOBETASOL PROPIONATE. [Concomitant]
     Active Substance: CLOBETASOL PROPIONATE
     Indication: PRODUCT USED FOR UNKNOWN INDICATION
     Dosage: UNK
     Route: 065
     Dates: start: 20210329
  5. CEMIPLIMAB [Suspect]
     Active Substance: CEMIPLIMAB
     Dosage: 350 MG, SINGLE
     Route: 042
     Dates: start: 20210419, end: 20210419
  6. LEVOCETIRIZINE [Concomitant]
     Active Substance: LEVOCETIRIZINE
     Indication: PRODUCT USED FOR UNKNOWN INDICATION
     Dosage: UNK
     Route: 065
     Dates: start: 20210329
  7. CEMIPLIMAB [Suspect]
     Active Substance: CEMIPLIMAB
     Dosage: 350 MG, SINGLE
     Route: 042
     Dates: start: 20210329, end: 20210329

REACTIONS (1)
  - Haemophagocytic lymphohistiocytosis [Recovered/Resolved]

NARRATIVE: CASE EVENT DATE: 20210527
